FAERS Safety Report 10094807 (Version 17)
Quarter: 2015Q4

REPORT INFORMATION
  Report Type: Report from Study
  Country: CA (occurrence: CA)
  Receive Date: 20140422
  Receipt Date: 20151116
  Transmission Date: 20160304
  Serious: Yes (Death, Hospitalization, Other)
  Sender: FDA-Public Use
  Company Number: PHHY2013CA153127

PATIENT
  Age: 57 Year
  Sex: Female

DRUGS (6)
  1. SANDOSTATIN LAR DEPOT [Suspect]
     Active Substance: OCTREOTIDE ACETATE
     Dosage: 30 MG, QMO
     Route: 030
  2. SANDOSTATIN LAR DEPOT [Suspect]
     Active Substance: OCTREOTIDE ACETATE
     Indication: CARCINOID TUMOUR OF THE SMALL BOWEL
     Dosage: 20 MG, QMO
     Route: 030
     Dates: start: 20131220
  3. SANDOSTATIN LAR DEPOT [Suspect]
     Active Substance: OCTREOTIDE ACETATE
     Dosage: 30 MG, QMO (EVERY 4 WEEKS)
     Route: 030
  4. SANDOSTATIN LAR DEPOT [Suspect]
     Active Substance: OCTREOTIDE ACETATE
     Dosage: 40 MG, EVERY 4 WEEKS
     Route: 030
  5. SANDOSTATIN LAR DEPOT [Suspect]
     Active Substance: OCTREOTIDE ACETATE
     Dosage: 40 MG, QMO (EVERY 4 WEEKS)
     Route: 030
     Dates: end: 20150908
  6. ENSURE [Concomitant]
     Active Substance: AMINO ACIDS\DEXTROSE\ELECTROLYTES NOS\SOYBEAN OIL\VITAMINS
     Indication: PRODUCT USED FOR UNKNOWN INDICATION
     Route: 065

REACTIONS (24)
  - Vomiting [Unknown]
  - Malaise [Recovering/Resolving]
  - Chest pain [Not Recovered/Not Resolved]
  - Blood pressure systolic increased [Unknown]
  - Faeces discoloured [Unknown]
  - Death [Fatal]
  - Fatigue [Recovering/Resolving]
  - Metastases to liver [Unknown]
  - Dizziness [Unknown]
  - Decreased appetite [Unknown]
  - Contusion [Unknown]
  - Pain [Unknown]
  - Body temperature increased [Unknown]
  - Abdominal pain [Not Recovered/Not Resolved]
  - Dehydration [Unknown]
  - Gastrointestinal pain [Unknown]
  - Post procedural discomfort [Unknown]
  - Depressed mood [Unknown]
  - Speech disorder [Unknown]
  - Diarrhoea [Not Recovered/Not Resolved]
  - Asthenia [Unknown]
  - Abdominal pain [Recovered/Resolved]
  - Hypotension [Unknown]
  - Faeces soft [Unknown]

NARRATIVE: CASE EVENT DATE: 20140117
